FAERS Safety Report 9797421 (Version 1)
Quarter: 2014Q1

REPORT INFORMATION
  Report Type: Report from Study
  Country: US (occurrence: US)
  Receive Date: 20140106
  Receipt Date: 20140106
  Transmission Date: 20141002
  Serious: Yes (Other)
  Sender: FDA-Public Use
  Company Number: US-ROCHE-1325319

PATIENT
  Sex: Female

DRUGS (6)
  1. SAQUINAVIR [Suspect]
     Indication: HIV INFECTION
     Route: 048
  2. LAMIVUDINE [Suspect]
     Indication: HIV INFECTION
     Route: 048
  3. ZIDOVUDINE [Suspect]
     Indication: HIV INFECTION
     Route: 048
  4. ZIDOVUDINE [Suspect]
     Dosage: OVER 1 HOUR FOLLOWED BY 1 MG/KG PER HOUR UNTIL CORD IS CLAMPED
     Route: 042
  5. RITONAVIR [Suspect]
     Indication: HIV INFECTION
     Route: 048
  6. SULFAMETHOXAZOLE/TRIMETHOPRIM [Concomitant]
     Route: 065

REACTIONS (3)
  - Amylase increased [Unknown]
  - Maternal exposure during pregnancy [Unknown]
  - Premature delivery [Unknown]
